FAERS Safety Report 25508227 (Version 1)
Quarter: 2025Q3

REPORT INFORMATION
  Report Type: Spontaneous
  Country: TN (occurrence: TN)
  Receive Date: 20250703
  Receipt Date: 20250703
  Transmission Date: 20251021
  Serious: Yes (Death, Other)
  Sender: ROCHE
  Company Number: TN-ROCHE-10000324927

PATIENT
  Age: 53 Year
  Sex: Female

DRUGS (1)
  1. ALECTINIB [Suspect]
     Active Substance: ALECTINIB
     Indication: Lung carcinoma cell type unspecified stage IV
     Route: 065
     Dates: start: 202410

REACTIONS (8)
  - Ill-defined disorder [Fatal]
  - Fatigue [Fatal]
  - Chest pain [Fatal]
  - Pulmonary embolism [Fatal]
  - Cardiotoxicity [Fatal]
  - Dyspnoea [Fatal]
  - Pulmonary oedema [Unknown]
  - Hypercapnia [Fatal]

NARRATIVE: CASE EVENT DATE: 20241001
